FAERS Safety Report 6497994-X (Version None)
Quarter: 2009Q4

REPORT INFORMATION
  Report Type: 
  Country: None (occurrence: None)
  Receive Date: 20091215
  Receipt Date: 20091203
  Transmission Date: 20100525
  Serious: Yes (Hospitalization)
  Sender: FDA-Public Use
  Company Number: PHHY2009US53960

PATIENT
  Sex: Male

DRUGS (1)
  1. EXJADE [Suspect]
     Dosage: 250 MG DAILY
     Route: 048
     Dates: start: 20081113, end: 20091112

REACTIONS (1)
  - CERVICAL VERTEBRAL FRACTURE [None]
